FAERS Safety Report 6842848-X (Version None)
Quarter: 2010Q3

REPORT INFORMATION
  Report Type: 
  Country: None (occurrence: None)
  Receive Date: 20100714
  Receipt Date: 20070803
  Transmission Date: 20110219
  Serious: Yes (Other)
  Sender: FDA-Public Use
  Company Number: US-PFIZER INC-2007066198

PATIENT
  Age: 67 Year
  Sex: Female
  Weight: 93.2 kg

DRUGS (6)
  1. CHANTIX [Suspect]
     Indication: SMOKING CESSATION THERAPY
     Dates: start: 20070601, end: 20070803
  2. ALL OTHER THERAPEUTIC PRODUCTS [Suspect]
     Indication: PSYCHOTIC DISORDER
  3. EFFEXOR [Concomitant]
  4. DOXEPIN HCL [Concomitant]
  5. METOPROLOL [Concomitant]
  6. HYDROCHLOROTHIAZIDE [Concomitant]

REACTIONS (5)
  - DIZZINESS [None]
  - DYSPNOEA [None]
  - MENTAL DISORDER [None]
  - MUSCLE SPASMS [None]
  - TENSION [None]
